FAERS Safety Report 11265184 (Version 3)
Quarter: 2015Q4

REPORT INFORMATION
  Report Type: Spontaneous
  Country: GB (occurrence: GB)
  Receive Date: 20150713
  Receipt Date: 20151028
  Transmission Date: 20160304
  Serious: Yes (Other)
  Sender: FDA-Public Use
  Company Number: GB-ROCHE-1329063

PATIENT
  Sex: Female

DRUGS (1)
  1. HERCEPTIN [Suspect]
     Active Substance: TRASTUZUMAB
     Indication: PRODUCT USED FOR UNKNOWN INDICATION
     Route: 058

REACTIONS (5)
  - Skin discolouration [Recovering/Resolving]
  - Renal disorder [Unknown]
  - Lichen planus [Unknown]
  - Pruritus [Unknown]
  - Dry skin [Unknown]
